FAERS Safety Report 6465827-3 (Version None)
Quarter: 2009Q4

REPORT INFORMATION
  Report Type: 
  Country: None (occurrence: None)
  Receive Date: 20091127
  Receipt Date: 20091118
  Transmission Date: 20100525
  Serious: Yes (Hospitalization)
  Sender: FDA-Public Use
  Company Number: ADR51232009

PATIENT
  Age: 9 Year
  Sex: Male

DRUGS (1)
  1. SERTRALINE HCL [Suspect]
     Dosage: 50 MG/DAY; ORAL, 1 DOSE
     Route: 048

REACTIONS (2)
  - RHABDOMYOLYSIS [None]
  - SEROTONIN SYNDROME [None]
